FAERS Safety Report 7893410-1 (Version None)
Quarter: 2011Q4

REPORT INFORMATION
  Report Type: 
  Country: None (occurrence: None)
  Receive Date: 20111104
  Receipt Date: 20111027
  Transmission Date: 20120403
  Serious: Yes (Other)
  Sender: FDA-Public Use
  Company Number: AR-ROCHE-1008749

PATIENT
  Sex: Female

DRUGS (1)
  1. LUCENTIS [Suspect]
     Indication: VISUAL IMPAIRMENT
     Route: 050
     Dates: start: 20110331

REACTIONS (3)
  - FALL [None]
  - HAND FRACTURE [None]
  - WRIST FRACTURE [None]
